FAERS Safety Report 7675793-0 (Version None)
Quarter: 2011Q3

REPORT INFORMATION
  Report Type: 
  Country: None (occurrence: None)
  Receive Date: 20110810
  Receipt Date: 20110801
  Transmission Date: 20111222
  Serious: Yes (Hospitalization)
  Sender: FDA-Public Use
  Company Number: US-ASTRAZENECA-2010SE40819

PATIENT
  Age: 57 Year
  Sex: Female
  Weight: 68 kg

DRUGS (10)
  1. SEROQUEL [Suspect]
     Route: 048
  2. SEROQUEL [Suspect]
     Indication: SLEEP DISORDER
     Dosage: DAILY
     Route: 048
  3. SEROQUEL [Suspect]
     Route: 048
  4. KLONAZAPAM [Concomitant]
  5. SEROQUEL [Suspect]
     Indication: PSYCHOTIC DISORDER
     Dosage: DAILY
     Route: 048
  6. REGLAN [Concomitant]
  7. RANITIDINE [Concomitant]
  8. SEROQUEL [Suspect]
     Indication: BIPOLAR I DISORDER
     Dosage: DAILY
     Route: 048
  9. SONATA [Concomitant]
  10. SEROQUEL [Suspect]
     Route: 048

REACTIONS (3)
  - DRUG DOSE OMISSION [None]
  - ACUTE PSYCHOSIS [None]
  - HANGOVER [None]
